FAERS Safety Report 7155037-9 (Version None)
Quarter: 2010Q4

REPORT INFORMATION
  Report Type: 
  Country: None (occurrence: None)
  Receive Date: 20101214
  Receipt Date: 20091209
  Transmission Date: 20110411
  Serious: No
  Sender: FDA-Public Use
  Company Number: US-AMGEN-KDL375538

PATIENT

DRUGS (13)
  1. ENBREL [Suspect]
     Indication: PSORIASIS
     Dosage: 50 MG, 2 TIMES/WK
     Route: 058
     Dates: start: 20091012, end: 20091125
  2. NAPROXEN [Suspect]
  3. AMITRIPTYLINE HYDROCHLORIDE [Concomitant]
  4. DIPHENHYDRAMINE HYDROCHLORIDE [Concomitant]
  5. METRONIDAZOLE [Concomitant]
  6. LISINOPRIL [Concomitant]
  7. TRIAMTERENE AND HYDROCHLOROTHIAZIDE [Concomitant]
  8. METHOCARBAMOL [Concomitant]
  9. TRAMADOL HYDROCHLORIDE [Concomitant]
  10. UNSPECIFIED MEDICATION [Concomitant]
  11. CETIRIZINE HYDROCHLORIDE [Concomitant]
  12. TEMAZEPAM [Concomitant]
  13. SIMVASTATIN [Concomitant]

REACTIONS (12)
  - DRUG INEFFECTIVE [None]
  - GAIT DISTURBANCE [None]
  - INJECTION SITE ERYTHEMA [None]
  - INJECTION SITE HAEMATOMA [None]
  - INJECTION SITE NODULE [None]
  - INJECTION SITE OEDEMA [None]
  - INJECTION SITE PAIN [None]
  - INJECTION SITE PRURITUS [None]
  - INJECTION SITE REACTION [None]
  - OEDEMA PERIPHERAL [None]
  - PAIN IN EXTREMITY [None]
  - PSORIASIS [None]
